FAERS Safety Report 8761322 (Version 8)
Quarter: 2015Q2

REPORT INFORMATION
  Report Type: Spontaneous
  Country: US (occurrence: US)
  Receive Date: 20120830
  Receipt Date: 20150401
  Transmission Date: 20150821
  Serious: Yes (Hospitalization, Disabling, Other)
  Sender: FDA-Public Use
  Company Number: US-009507513-1205USA00036

PATIENT
  Sex: Female
  Weight: 74.38 kg

DRUGS (5)
  1. FOSAMAX [Suspect]
     Active Substance: ALENDRONATE SODIUM
     Indication: OSTEOPOROSIS
  2. FOSAMAX [Suspect]
     Active Substance: ALENDRONATE SODIUM
     Indication: OSTEOPENIA
     Dosage: 70 MG, QW
     Route: 048
     Dates: start: 2002, end: 20100304
  3. PREMPRO [Concomitant]
     Active Substance: ESTROGENS, CONJUGATED\MEDROXYPROGESTERONE ACETATE
     Dosage: UNK
     Dates: start: 1979, end: 200912
  4. FOSAMAX PLUS D [Suspect]
     Active Substance: ALENDRONATE SODIUM\CHOLECALCIFEROL
     Dosage: UNK
     Route: 048
     Dates: start: 20070102
  5. ALENDRONATE SODIUM. [Suspect]
     Active Substance: ALENDRONATE SODIUM
     Dosage: UNK
     Dates: start: 20080818

REACTIONS (40)
  - Essential hypertension [Unknown]
  - Tonsillectomy [Unknown]
  - Bronchiectasis [Unknown]
  - Toe operation [Unknown]
  - Hyperlipidaemia [Unknown]
  - Eczema [Unknown]
  - Dyspepsia [Unknown]
  - Femoral neck fracture [Not Recovered/Not Resolved]
  - Osteoporosis [Not Recovered/Not Resolved]
  - Kidney infection [Unknown]
  - Irritable bowel syndrome [Unknown]
  - Metatarsal excision [Unknown]
  - Atelectasis [Unknown]
  - Urinary tract infection [Unknown]
  - Limb operation [Unknown]
  - Wound [Recovered/Resolved]
  - Exostosis [Unknown]
  - Tooth extraction [Unknown]
  - Supraventricular tachycardia [Unknown]
  - Internal fixation of fracture [Unknown]
  - Pulmonary hypertension [Unknown]
  - Constipation [Unknown]
  - Intervertebral disc operation [Unknown]
  - Osteotomy [Unknown]
  - Pain in jaw [Recovered/Resolved]
  - Low turnover osteopathy [Not Recovered/Not Resolved]
  - Stress fracture [Not Recovered/Not Resolved]
  - Uterine dilation and curettage [Unknown]
  - Drug intolerance [Unknown]
  - Cellulitis [Unknown]
  - Osteoarthritis [Unknown]
  - Diverticulitis [Unknown]
  - Lower respiratory tract inflammation [Not Recovered/Not Resolved]
  - Peripheral vascular disorder [Unknown]
  - Femur fracture [Not Recovered/Not Resolved]
  - Bruxism [Unknown]
  - Mitral valve prolapse [Unknown]
  - Cataract operation [Unknown]
  - Chronic obstructive pulmonary disease [Not Recovered/Not Resolved]
  - Anxiety disorder [Unknown]

NARRATIVE: CASE EVENT DATE: 20020513
